FAERS Safety Report 5143300-2 (Version None)
Quarter: 2006Q4

REPORT INFORMATION
  Report Type: 
  Country: None (occurrence: None)
  Receive Date: 20061103
  Receipt Date: 20060922
  Transmission Date: 20070319
  Serious: Yes (Other)
  Sender: FDA-Public Use
  Company Number: ES-ROCHE-464615

PATIENT
  Age: 45 Year
  Sex: Female

DRUGS (6)
  1. PEG-INTERFERON ALFA 2A (RO 25-8310) [Suspect]
     Route: 058
     Dates: start: 20040326
  2. PEG-INTERFERON ALFA 2A (RO 25-8310) [Suspect]
     Route: 058
     Dates: start: 20040513, end: 20041102
  3. RIBAVIRIN [Suspect]
     Route: 048
     Dates: start: 20040326, end: 20041102
  4. LAMIVUDINE [Concomitant]
     Dosage: TDD REPORTED AS 300.
     Dates: start: 20031219
  5. ABC [Concomitant]
     Dosage: TDD REPORTED AS 600.
     Dates: start: 20031219
  6. NVP [Concomitant]
     Dosage: TDD REPORTED AS 400.
     Dates: start: 20030514

REACTIONS (2)
  - CD4 LYMPHOCYTES DECREASED [None]
  - NEUTROPENIA [None]
